FAERS Safety Report 12094631 (Version 1)
Quarter: 2016Q1

REPORT INFORMATION
  Report Type: Spontaneous
  Country: US (occurrence: US)
  Receive Date: 20160219
  Receipt Date: 20160219
  Transmission Date: 20160526
  Serious: Yes (Hospitalization)
  Sender: FDA-Public Use
  Company Number: US-JNJFOC-20160210079

PATIENT
  Sex: Female
  Weight: 77.34 kg

DRUGS (1)
  1. STELARA [Suspect]
     Active Substance: USTEKINUMAB
     Indication: NAIL PSORIASIS
     Route: 058
     Dates: start: 20160125

REACTIONS (1)
  - Carnitine palmitoyltransferase deficiency [Not Recovered/Not Resolved]
